FAERS Safety Report 16825537 (Version 1)
Quarter: 2019Q3

REPORT INFORMATION
  Report Type: Spontaneous
  Country: US (occurrence: US)
  Receive Date: 20190919
  Receipt Date: 20190919
  Transmission Date: 20191005
  Serious: No
  Sender: FDA-Public Use
  Company Number: US-JNJFOC-20190915994

PATIENT
  Sex: Female
  Weight: 56.75 kg

DRUGS (1)
  1. TYLENOL [Suspect]
     Active Substance: ACETAMINOPHEN
     Indication: PAIN
     Dosage: 2 TABLETS EVERY 6 HOURS FOR 12 WEEKS
     Route: 048

REACTIONS (1)
  - Rash [Not Recovered/Not Resolved]
